FAERS Safety Report 8413706-4 (Version None)
Quarter: 2012Q2

REPORT INFORMATION
  Report Type: 
  Country: None (occurrence: None)
  Receive Date: 20120605
  Receipt Date: 20120531
  Transmission Date: 20120825
  Serious: Yes (Life-Threatening, Hospitalization, Other)
  Sender: FDA-Public Use
  Company Number: NL-ABBOTT-12P-114-0936347-00

PATIENT
  Sex: Female
  Weight: 62 kg

DRUGS (4)
  1. HUMIRA [Suspect]
     Indication: CROHN'S DISEASE
     Route: 058
     Dates: start: 20120203, end: 20120504
  2. AZATHIOPRINE [Concomitant]
     Indication: CROHN'S DISEASE
     Dosage: 2/1 TIME DAILY
     Route: 048
     Dates: start: 20080228, end: 20120509
  3. PERNADOL [Concomitant]
     Indication: PRODUCT USED FOR UNKNOWN INDICATION
  4. HUMIRA [Suspect]
     Indication: ILEECTOMY

REACTIONS (4)
  - ABDOMINAL DISTENSION [None]
  - ADENOMA BENIGN [None]
  - MALIGNANT ASCITES [None]
  - ABDOMINAL NEOPLASM [None]
